FAERS Safety Report 4623454-4 (Version None)
Quarter: 2005Q1

REPORT INFORMATION
  Report Type: 
  Country: None (occurrence: None)
  Receive Date: 20050330
  Receipt Date: 20050322
  Transmission Date: 20050727
  Serious: Yes (Death)
  Sender: FDA-Public Use
  Company Number: 2005CG00598

PATIENT
  Sex: Female

DRUGS (12)
  1. ARIMIDEX [Suspect]
  2. LEVOTHYROXINE SODIUM [Suspect]
  3. ENDOTELON [Suspect]
  4. DITROPAN / SCH/ [Suspect]
  5. PRAXILENE [Suspect]
  6. HEXAQUINE [Suspect]
  7. TANAKAN [Suspect]
  8. SECTRAL [Suspect]
  9. ZANIDIP [Suspect]
  10. ZOCOR [Suspect]
  11. DONEPEZIL HCL [Suspect]
  12. CHLOROQUINE PHOSPHATE [Suspect]

REACTIONS (1)
  - COMPLETED SUICIDE [None]
